FAERS Safety Report 10140954 (Version 2)
Quarter: 2014Q2

REPORT INFORMATION
  Report Type: Spontaneous
  Country: US (occurrence: US)
  Receive Date: 20140429
  Receipt Date: 20140519
  Transmission Date: 20141212
  Serious: Yes (Hospitalization, Other)
  Sender: FDA-Public Use
  Company Number: US-BAYER-2014-059780

PATIENT
  Age: 69 Year
  Sex: Male
  Weight: 58.96 kg

DRUGS (9)
  1. BAYER GENUINE ASPIRIN ORIGINAL STRENGTH [Suspect]
     Indication: ISCHAEMIC HEART DISEASE PROPHYLAXIS
     Dosage: 1 DF, QD
     Route: 048
     Dates: start: 1985, end: 201403
  2. VITAMIN E [Concomitant]
  3. GLUCOSAMINE SULFATE [Concomitant]
  4. VITAMIN C [Concomitant]
  5. COQ10 [Concomitant]
  6. STRESS FORMULA WITH ZINC [VIT C,VIT H,B5,B12,B3,B6,B2,B1 HCL,VIT E [Concomitant]
  7. OMEGA 3 FISH OIL [Concomitant]
  8. PUMPKIN OIL [Concomitant]
  9. BAYER CHEWABLE LOW DOSE ASPIRIN CHERRY FLAVORED [Concomitant]
     Dosage: UNK
     Dates: start: 201403

REACTIONS (8)
  - Loss of consciousness [Recovered/Resolved]
  - Dizziness [Recovered/Resolved]
  - Fall [Recovered/Resolved]
  - Laceration [Recovered/Resolved]
  - Presyncope [Recovered/Resolved]
  - Atrial fibrillation [Not Recovered/Not Resolved]
  - Heart rate irregular [Not Recovered/Not Resolved]
  - Dyspnoea exertional [Not Recovered/Not Resolved]
